FAERS Safety Report 21571076 (Version 1)
Quarter: 2022Q4

REPORT INFORMATION
  Report Type: Spontaneous
  Country: US (occurrence: None)
  Receive Date: 20221106
  Receipt Date: 20221106
  Transmission Date: 20230112
  Serious: No
  Sender: FDA-Public Use
  Company Number: None

PATIENT

DRUGS (1)
  1. EPINEPHRINE\LIDOCAINE\TETRACAINE [Suspect]
     Active Substance: EPINEPHRINE\LIDOCAINE\TETRACAINE

REACTIONS (1)
  - Packaging design issue [None]
